FAERS Safety Report 19709687 (Version 1)
Quarter: 2021Q3

REPORT INFORMATION
  Report Type: Spontaneous
  Country: TN (occurrence: TN)
  Receive Date: 20210816
  Receipt Date: 20210816
  Transmission Date: 20211014
  Serious: Yes (Other)
  Sender: FDA-Public Use
  Company Number: TN-GLAXOSMITHKLINE-TN2021GSK163565

PATIENT
  Age: 10 Year
  Sex: Male

DRUGS (7)
  1. LAMOTRIGINE. [Interacting]
     Active Substance: LAMOTRIGINE
     Dosage: 5 MG/KG, 1D
  2. VALPROATE [Interacting]
     Active Substance: VALPROIC ACID
     Dosage: 30 MG/KG, 1D
  3. ETHOSUXIMIDE. [Suspect]
     Active Substance: ETHOSUXIMIDE
     Indication: IDIOPATHIC GENERALISED EPILEPSY
     Dosage: 30 MG/KG, 1D
  4. LAMOTRIGINE. [Suspect]
     Active Substance: LAMOTRIGINE
     Indication: IDIOPATHIC GENERALISED EPILEPSY
     Dosage: 5 MG/KG, 1D
  5. LAMOTRIGINE. [Interacting]
     Active Substance: LAMOTRIGINE
     Dosage: 9 MG/KG, 1D
  6. VALPROATE [Interacting]
     Active Substance: VALPROIC ACID
     Indication: IDIOPATHIC GENERALISED EPILEPSY
     Dosage: 20 MG/KG, 1D
  7. CLONAZEPAM. [Suspect]
     Active Substance: CLONAZEPAM
     Indication: EPILEPSY
     Dosage: 0.06 MG/KG, 1D

REACTIONS (21)
  - Symptom recurrence [Recovered/Resolved]
  - Gait disturbance [Recovered/Resolved]
  - Nystagmus [Recovered/Resolved]
  - Cerebellar atrophy [Unknown]
  - Opsoclonus myoclonus [Recovered/Resolved]
  - Toxicity to various agents [Recovered/Resolved]
  - Ataxia [Recovered/Resolved]
  - Aggression [Recovered/Resolved]
  - Sleep disorder [Recovered/Resolved]
  - Insomnia [Recovered/Resolved]
  - Saccadic eye movement [Recovered/Resolved]
  - Overdose [Unknown]
  - Anxiety [Recovered/Resolved]
  - Myoclonus [Recovered/Resolved]
  - Eye movement disorder [Recovered/Resolved]
  - Drug ineffective [Unknown]
  - Irritability [Recovered/Resolved]
  - Eyelid disorder [Recovered/Resolved]
  - Agitation [Recovered/Resolved]
  - Balance disorder [Recovered/Resolved]
  - Drug interaction [Unknown]
